FAERS Safety Report 18608467 (Version 2)
Quarter: 2020Q4

REPORT INFORMATION
  Report Type: Report from Study
  Country: AR (occurrence: AR)
  Receive Date: 20201212
  Receipt Date: 20201219
  Transmission Date: 20210114
  Serious: Yes (Death, Hospitalization)
  Sender: FDA-Public Use
  Company Number: NVSC2020AR330923

PATIENT
  Sex: Female

DRUGS (1)
  1. KISQALI [Suspect]
     Active Substance: RIBOCICLIB
     Indication: BREAST CANCER
     Dosage: 600 MG, QD
     Route: 048
     Dates: start: 20201107

REACTIONS (7)
  - Disorientation [Unknown]
  - Back pain [Unknown]
  - Metastases to spine [Unknown]
  - Brain oedema [Unknown]
  - Breast cancer [Fatal]
  - Depressed mood [Unknown]
  - Asthenia [Unknown]
